FAERS Safety Report 21755309 (Version 1)
Quarter: 2022Q4

REPORT INFORMATION
  Report Type: Spontaneous
  Country: US (occurrence: None)
  Receive Date: 20221220
  Receipt Date: 20221220
  Transmission Date: 20230113
  Serious: No
  Sender: FDA-Public Use
  Company Number: US-SUPERNUS Pharmaceuticals, Inc.-SUP202204-000656

PATIENT
  Age: 35 Year
  Sex: Female
  Weight: 67.58 kg

DRUGS (2)
  1. TROKENDI XR [Suspect]
     Active Substance: TOPIRAMATE
     Indication: Seizure
     Dates: start: 2000
  2. LEVOTHYROXINE [Concomitant]
     Active Substance: LEVOTHYROXINE
     Indication: Thyroid disorder
     Dosage: NOT PROVIDED

REACTIONS (1)
  - Amenorrhoea [Not Recovered/Not Resolved]

NARRATIVE: CASE EVENT DATE: 20220101
